FAERS Safety Report 18744768 (Version 1)
Quarter: 2021Q1

REPORT INFORMATION
  Report Type: Spontaneous
  Country: ES (occurrence: ES)
  Receive Date: 20210115
  Receipt Date: 20210115
  Transmission Date: 20210419
  Serious: Yes (Other)
  Sender: FDA-Public Use
  Company Number: ES-AUROBINDO-AUR-APL-2021-001822

PATIENT
  Age: 53 Year
  Sex: Male
  Weight: 54.6 kg

DRUGS (1)
  1. VORICONAZOLE. [Suspect]
     Active Substance: VORICONAZOLE
     Indication: FUNGAL INFECTION
     Dosage: 29/8 A LAS 19 H 400 MG, 30/8 6 H 400 MG, 30/8 18 H 200 MG, 30/8 23H 200 MG, 31/8 A LAS 8 Y 20 H 200
     Route: 042
     Dates: start: 20200829, end: 20200901

REACTIONS (3)
  - Tremor [Recovered/Resolved]
  - Myoclonus [Recovered/Resolved]
  - Medication error [Recovered/Resolved]

NARRATIVE: CASE EVENT DATE: 20200830
